FAERS Safety Report 5098512-3 (Version None)
Quarter: 2006Q3

REPORT INFORMATION
  Report Type: 
  Country: None (occurrence: None)
  Receive Date: 20060906
  Receipt Date: 20060208
  Transmission Date: 20061208
  Serious: Yes (Other)
  Sender: FDA-Public Use
  Company Number: US-GLAXOSMITHKLINE-A0593129A

PATIENT
  Age: 61 Year
  Sex: Female
  Weight: 79.5 kg

DRUGS (3)
  1. REQUIP [Suspect]
     Indication: RESTLESS LEGS SYNDROME
     Dosage: .5MG PER DAY
     Route: 048
     Dates: start: 20051108, end: 20051114
  2. ZOCOR [Concomitant]
  3. NEXIUM [Concomitant]

REACTIONS (1)
  - SYNCOPE [None]
